FAERS Safety Report 8615188-6 (Version None)
Quarter: 2012Q3

REPORT INFORMATION
  Report Type: 
  Country: None (occurrence: None)
  Receive Date: 20120814
  Receipt Date: 20120814
  Transmission Date: 20120928
  Serious: Yes (Hospitalization)
  Sender: FDA-Public Use
  Company Number: None

PATIENT
  Age: 79 Year
  Sex: Male
  Weight: 43.5453 kg

DRUGS (1)
  1. SULFAMETHOXAZOLE AND TRIMETHOPRIM [Suspect]
     Indication: SURGERY
     Dosage: 1 TAB BID PO
     Route: 048
     Dates: start: 20110226, end: 20110302

REACTIONS (4)
  - HYPERKALAEMIA [None]
  - FATIGUE [None]
  - FAECES DISCOLOURED [None]
  - RENAL FAILURE ACUTE [None]
